FAERS Safety Report 16652733 (Version 2)
Quarter: 2019Q3

REPORT INFORMATION
  Report Type: Spontaneous
  Country: US (occurrence: US)
  Receive Date: 20190731
  Receipt Date: 20190802
  Transmission Date: 20191004
  Serious: No
  Sender: FDA-Public Use
  Company Number: US-TEVA-2019-US-1084157

PATIENT
  Sex: Female

DRUGS (3)
  1. LORAZEPAM. [Suspect]
     Active Substance: LORAZEPAM
     Indication: INSOMNIA
     Dosage: 1 1/2
     Route: 065
     Dates: start: 2017
  2. LORAZEPAM. [Suspect]
     Active Substance: LORAZEPAM
     Dosage: DOSE 1 1/2 MG AT NIGHT
     Route: 065
     Dates: start: 20190722
  3. LORAZEPAM. [Suspect]
     Active Substance: LORAZEPAM
     Dosage: DOSE 2 MG
     Route: 065
     Dates: start: 20190721

REACTIONS (4)
  - Therapy change [Unknown]
  - Drug ineffective [Unknown]
  - Nausea [Unknown]
  - Headache [Unknown]
